FAERS Safety Report 5917576-5 (Version None)
Quarter: 2008Q4

REPORT INFORMATION
  Report Type: 
  Country: None (occurrence: None)
  Receive Date: 20081009
  Receipt Date: 20080926
  Transmission Date: 20090506
  Serious: Yes (Hospitalization)
  Sender: FDA-Public Use
  Company Number: CIP08001746

PATIENT
  Age: 60 Year
  Sex: Male
  Weight: 82 kg

DRUGS (4)
  1. FURADANTIN [Suspect]
     Indication: URINARY TRACT INFECTION
     Dosage: 2 DOSE FORMS DAILY, ORAL
     Route: 048
     Dates: start: 20080828, end: 20080903
  2. METFORMIN HCL [Concomitant]
  3. COAPROVEL 150/12.5 (HYDROCHLOROTHIAZIDE, IRBESARTAN) [Concomitant]
  4. ATORVASTATIN CALCIUM [Concomitant]

REACTIONS (5)
  - CHEST DISCOMFORT [None]
  - CHEST PAIN [None]
  - OROPHARYNGEAL PAIN [None]
  - PAIN IN EXTREMITY [None]
  - PYREXIA [None]
